FAERS Safety Report 9353352 (Version 1)
Quarter: 2013Q2

REPORT INFORMATION
  Report Type: Spontaneous
  Country: US (occurrence: US)
  Receive Date: 20130618
  Receipt Date: 20130618
  Transmission Date: 20140414
  Serious: No
  Sender: FDA-Public Use
  Company Number: US-BAYER-2013-074621

PATIENT
  Age: 31 Year
  Sex: Male
  Weight: 86 kg

DRUGS (3)
  1. ALEVE CAPLET [Suspect]
     Dosage: 2 DF,
     Route: 048
  2. DIVALPROEX [Concomitant]
  3. CITALOPRAM [Concomitant]

REACTIONS (3)
  - Drug ineffective [None]
  - Migraine [None]
  - Incorrect dose administered [None]
